FAERS Safety Report 5925184-5 (Version None)
Quarter: 2008Q4

REPORT INFORMATION
  Report Type: 
  Country: None (occurrence: None)
  Receive Date: 20081020
  Receipt Date: 20081020
  Transmission Date: 20090506
  Serious: No
  Sender: FDA-Public Use
  Company Number: None

PATIENT
  Age: 37 Year
  Sex: Female
  Weight: 70.3075 kg

DRUGS (1)
  1. LEVAQUIN [Suspect]
     Indication: KIDNEY INFECTION
     Dosage: 500 MG 1 TABLET PER DAY PO
     Route: 048
     Dates: start: 20080715, end: 20080722

REACTIONS (6)
  - ANXIETY [None]
  - BURNING SENSATION [None]
  - MUSCLE TWITCHING [None]
  - NERVOUS SYSTEM DISORDER [None]
  - NERVOUSNESS [None]
  - SENSORY DISTURBANCE [None]
